FAERS Safety Report 8445643-3 (Version None)
Quarter: 2012Q2

REPORT INFORMATION
  Report Type: 
  Country: None (occurrence: None)
  Receive Date: 20120618
  Receipt Date: 20120610
  Transmission Date: 20120825
  Serious: Yes (Hospitalization, Other)
  Sender: FDA-Public Use
  Company Number: IL-B.I. PHARMACEUTICALS,INC./RIDGEFIELD-2012-AP-00454RI

PATIENT
  Age: 92 Year
  Sex: Female

DRUGS (4)
  1. PRADAXA [Suspect]
     Dosage: 220 MG
     Route: 048
     Dates: start: 20120120, end: 20120506
  2. GABAPENTIN [Suspect]
     Dosage: 2400 NR
     Route: 048
     Dates: start: 20040101, end: 20120506
  3. PRODAR [Concomitant]
     Dosage: 200 NR
     Route: 048
  4. FUROSEMIDE [Concomitant]
     Dosage: 60 NR
     Route: 048

REACTIONS (2)
  - COMA [None]
  - ENCEPHALOPATHY [None]
